FAERS Safety Report 8224037-X (Version None)
Quarter: 2012Q1

REPORT INFORMATION
  Report Type: 
  Country: None (occurrence: None)
  Receive Date: 20120321
  Receipt Date: 20120309
  Transmission Date: 20120608
  Serious: No
  Sender: FDA-Public Use
  Company Number: US-B.I. PHARMACEUTICALS,INC./RIDGEFIELD-2012-BP-04550BP

PATIENT
  Sex: Male

DRUGS (7)
  1. LIPITOR [Concomitant]
     Indication: BLOOD CHOLESTEROL INCREASED
     Route: 048
     Dates: start: 19950101
  2. TRAZODONE HCL [Concomitant]
     Route: 048
     Dates: start: 20080101
  3. BYSTOLIC [Concomitant]
     Indication: HYPERTENSION
     Route: 048
  4. GEMFIBROZIL [Concomitant]
     Indication: BLOOD CHOLESTEROL INCREASED
     Route: 048
     Dates: start: 20120101
  5. NORVASC [Concomitant]
     Indication: HYPERTENSION
     Route: 048
     Dates: start: 19950101
  6. SPIRIVA [Suspect]
     Indication: MULTIPLE ALLERGIES
     Dosage: 18 MCG
     Route: 055
     Dates: start: 20120219
  7. LUNESTA [Concomitant]
     Route: 048
     Dates: start: 20080101

REACTIONS (1)
  - DYSPNOEA [None]
